FAERS Safety Report 8224257-4 (Version None)
Quarter: 2012Q1

REPORT INFORMATION
  Report Type: 
  Country: None (occurrence: None)
  Receive Date: 20120321
  Receipt Date: 20120312
  Transmission Date: 20120608
  Serious: Yes (Hospitalization, Other)
  Sender: FDA-Public Use
  Company Number: US-PURDUE-USA-2012-0083657

PATIENT
  Sex: Female

DRUGS (6)
  1. PRAVASTATIN [Concomitant]
     Indication: HYPERCHOLESTEROLAEMIA
     Dosage: 20 MG, DAILY
     Route: 048
     Dates: start: 20050101
  2. VICODIN [Suspect]
     Indication: BACK PAIN
     Dosage: UNK, SEE TEXT
     Route: 048
  3. DILAUDID [Suspect]
     Indication: BACK PAIN
  4. ESCITALOPRAM OXALATE [Concomitant]
     Indication: ANXIETY
  5. ESCITALOPRAM OXALATE [Concomitant]
     Indication: DEPRESSION
     Dosage: 20 MG, DAILY
     Route: 048
     Dates: start: 20030101
  6. STUDY DRUG [Suspect]
     Indication: CHRONIC OBSTRUCTIVE PULMONARY DISEASE
     Route: 055

REACTIONS (3)
  - MULTIPLE DRUG OVERDOSE [None]
  - HYPONATRAEMIA [None]
  - RESPIRATORY FAILURE [None]
